FAERS Safety Report 5987153-9 (Version None)
Quarter: 2008Q4

REPORT INFORMATION
  Report Type: 
  Country: None (occurrence: None)
  Receive Date: 20081209
  Receipt Date: 20081128
  Transmission Date: 20090506
  Serious: Yes (Other)
  Sender: FDA-Public Use
  Company Number: FR-PFIZER INC-2008101320

PATIENT

DRUGS (2)
  1. TAHOR [Suspect]
     Indication: ANGIOPLASTY
     Dosage: 10 MG
     Dates: start: 20080901
  2. DRUG, UNSPECIFIED [Concomitant]

REACTIONS (4)
  - FALL [None]
  - GAIT DISTURBANCE [None]
  - MOTOR DYSFUNCTION [None]
  - MUSCULAR WEAKNESS [None]
